FAERS Safety Report 4337283-2 (Version None)
Quarter: 2004Q2

REPORT INFORMATION
  Report Type: 
  Country: None (occurrence: None)
  Receive Date: 20040408
  Receipt Date: 20040330
  Transmission Date: 20050107
  Serious: Yes (Life-Threatening, Hospitalization)
  Sender: FDA-Public Use
  Company Number: 2004-03-0611

PATIENT
  Age: 35 Year
  Sex: Male
  Weight: 76 kg

DRUGS (10)
  1. INTRON A [Suspect]
     Indication: HEPATITIS C
     Dosage: 10 MU QD INTRAMUSCULAR; 10 MU TIW INTRAMUSCULAR; 6 MU TIW INTRAMUSCULAR
     Route: 030
     Dates: start: 20030807, end: 20030903
  2. INTRON A [Suspect]
     Indication: HEPATITIS C
     Dosage: 10 MU QD INTRAMUSCULAR; 10 MU TIW INTRAMUSCULAR; 6 MU TIW INTRAMUSCULAR
     Route: 030
     Dates: start: 20030905, end: 20031225
  3. INTRON A [Suspect]
     Indication: HEPATITIS C
     Dosage: 10 MU QD INTRAMUSCULAR; 10 MU TIW INTRAMUSCULAR; 6 MU TIW INTRAMUSCULAR
     Route: 030
     Dates: start: 20031227, end: 20040130
  4. REBETOL [Suspect]
     Indication: HEPATITIS C
     Dosage: 800 MG QD ORAL; 600 MG QD ORAL; 400 MG QD ORAL
     Route: 048
     Dates: start: 20030807, end: 20031225
  5. REBETOL [Suspect]
     Indication: HEPATITIS C
     Dosage: 800 MG QD ORAL; 600 MG QD ORAL; 400 MG QD ORAL
     Route: 048
     Dates: start: 20031226, end: 20040108
  6. REBETOL [Suspect]
     Indication: HEPATITIS C
     Dosage: 800 MG QD ORAL; 600 MG QD ORAL; 400 MG QD ORAL
     Route: 048
     Dates: start: 20040109, end: 20040122
  7. URSO [Concomitant]
  8. BLOPRESS (CANDESARTAN CILEXETIL) [Concomitant]
  9. NIFEDIPINE [Concomitant]
  10. LANSOPRAZOLE [Concomitant]

REACTIONS (2)
  - HAEMOLYTIC URAEMIC SYNDROME [None]
  - PLATELET COUNT DECREASED [None]
